FAERS Safety Report 17526894 (Version 2)
Quarter: 2020Q2

REPORT INFORMATION
  Report Type: Spontaneous
  Country: AU (occurrence: AU)
  Receive Date: 20200310
  Receipt Date: 20200429
  Transmission Date: 20200713
  Serious: Yes (Other)
  Sender: FDA-Public Use
  Company Number: AU-GUERBET-AU-20200012

PATIENT
  Age: 60 Year
  Sex: Male

DRUGS (7)
  1. DILTIAZEM. [Concomitant]
     Active Substance: DILTIAZEM
     Indication: HYPERTENSION
     Route: 065
  2. LIPIODOL ULTRA-FLUIDE [Suspect]
     Active Substance: ETHIODIZED OIL
     Indication: TRANSCATHETER ARTERIAL CHEMOEMBOLISATION
     Dosage: 2 ML LIPIODOL/CISPLATINUM
     Route: 013
     Dates: start: 201805
  3. ACCURETIC [Concomitant]
     Active Substance: HYDROCHLOROTHIAZIDE\QUINAPRIL HYDROCHLORIDE
     Indication: HYPERTENSION
     Route: 065
  4. LIPIODOL ULTRA-FLUIDE [Suspect]
     Active Substance: ETHIODIZED OIL
     Dosage: 4 ML LIPIODOL/CISPLATINUM
     Route: 013
     Dates: start: 201810
  5. ATENOLOL. [Concomitant]
     Active Substance: ATENOLOL
     Indication: HYPERTENSION
     Route: 065
  6. CISPLATIN. [Concomitant]
     Active Substance: CISPLATIN
     Indication: TRANSCATHETER ARTERIAL CHEMOEMBOLISATION
     Dosage: 2ML LIPIODOL/CISPLATINUM
     Route: 013
     Dates: start: 201805
  7. CISPLATIN. [Concomitant]
     Active Substance: CISPLATIN
     Dosage: 4ML LIPIODOL/CISPLATINUM
     Route: 013
     Dates: start: 201810

REACTIONS (2)
  - Product use in unapproved indication [Recovered/Resolved with Sequelae]
  - Diaphragmatic paralysis [Recovered/Resolved with Sequelae]

NARRATIVE: CASE EVENT DATE: 201811
